FAERS Safety Report 6266406-3 (Version None)
Quarter: 2009Q3

REPORT INFORMATION
  Report Type: 
  Country: None (occurrence: None)
  Receive Date: 20090709
  Receipt Date: 20090629
  Transmission Date: 20100115
  Serious: Yes (Other)
  Sender: FDA-Public Use
  Company Number: 2009SP001692

PATIENT
  Age: 43 Year
  Sex: Female
  Weight: 65.8 kg

DRUGS (5)
  1. LUNESTA [Suspect]
     Indication: INSOMNIA
     Dosage: 2 MG, PRN, ORAL, 3 MG, PRN, ORAL
     Route: 048
     Dates: start: 20070101, end: 20090401
  2. LUNESTA [Suspect]
     Indication: INSOMNIA
     Dosage: 2 MG, PRN, ORAL, 3 MG, PRN, ORAL
     Route: 048
     Dates: start: 20090401, end: 20090601
  3. BETA BLOCKING AGENTS [Concomitant]
  4. AMBIEN [Concomitant]
  5. BENZODIAZEPINE DERIVATIVES [Concomitant]

REACTIONS (4)
  - ANXIETY [None]
  - BREAST CANCER [None]
  - CONDITION AGGRAVATED [None]
  - INSOMNIA [None]
